FAERS Safety Report 4773109-0 (Version None)
Quarter: 2005Q3

REPORT INFORMATION
  Report Type: 
  Country: None (occurrence: None)
  Receive Date: 20050916
  Receipt Date: 20050906
  Transmission Date: 20060218
  Serious: Yes (Other)
  Sender: FDA-Public Use
  Company Number: 2005103648

PATIENT
  Age: 48 Year
  Sex: Male
  Weight: 149.687 kg

DRUGS (10)
  1. PROCARDIA XL [Suspect]
     Indication: BLOOD PRESSURE
     Dosage: 60 MG (30 MG, BID), ORAL
     Route: 048
     Dates: start: 19970101
  2. PROGRAF [Suspect]
     Indication: RENAL TRANSPLANT
     Dosage: 4 MG (1 MG, BID),
     Dates: start: 20030917
  3. ZOLOFT [Concomitant]
  4. PREDNISONE [Concomitant]
  5. CELLCEPT [Concomitant]
  6. ATACAND [Concomitant]
  7. XANAX [Concomitant]
  8. HYDROCORTISONE [Concomitant]
  9. BACTROBAN (MUPIROCIN) [Concomitant]
  10. TRIAMCINOLONE [Concomitant]

REACTIONS (2)
  - DIABETES MELLITUS NON-INSULIN-DEPENDENT [None]
  - GLUCOSE TOLERANCE IMPAIRED [None]
